FAERS Safety Report 4379372-2 (Version None)
Quarter: 2004Q2

REPORT INFORMATION
  Report Type: 
  Country: None (occurrence: None)
  Receive Date: 20040610
  Receipt Date: 20040430
  Transmission Date: 20050107
  Serious: Yes (Hospitalization)
  Sender: FDA-Public Use
  Company Number: KII-2004-0011086

PATIENT
  Age: 10 Month
  Sex: Male

DRUGS (1)
  1. MORPHINE SULFATE [Suspect]
     Dosage: ORAL
     Route: 048

REACTIONS (7)
  - ACCIDENTAL EXPOSURE [None]
  - BLOOD PRESSURE DIASTOLIC INCREASED [None]
  - HYPOTENSION [None]
  - LETHARGY [None]
  - NEUROTOXICITY [None]
  - RESPIRATORY DEPRESSION [None]
  - SOMNOLENCE [None]
